FAERS Safety Report 22034382 (Version 1)
Quarter: 2023Q1

REPORT INFORMATION
  Report Type: Spontaneous
  Country: US (occurrence: US)
  Receive Date: 20230224
  Receipt Date: 20230224
  Transmission Date: 20230417
  Serious: No
  Sender: FDA-Public Use
  Company Number: US-SANOFI-01501567

PATIENT
  Age: 39 Year
  Sex: Male

DRUGS (1)
  1. DUPIXENT [Suspect]
     Active Substance: DUPILUMAB
     Indication: Dermatitis atopic
     Dosage: 600 MG, 1X
     Dates: start: 20230119, end: 20230119

REACTIONS (10)
  - Contusion [Unknown]
  - Skin swelling [Unknown]
  - Lymphadenopathy [Unknown]
  - Dyspnoea [Unknown]
  - Gait disturbance [Unknown]
  - White blood cell count increased [Unknown]
  - Skin exfoliation [Unknown]
  - Urticaria [Unknown]
  - Erythema [Unknown]
  - Rash [Unknown]

NARRATIVE: CASE EVENT DATE: 20230101
